FAERS Safety Report 12281910 (Version 1)
Quarter: 2016Q2

REPORT INFORMATION
  Report Type: Spontaneous
  Country: FR (occurrence: FR)
  Receive Date: 20160419
  Receipt Date: 20160419
  Transmission Date: 20160815
  Serious: Yes (Hospitalization)
  Sender: FDA-Public Use
  Company Number: FR-PFIZER INC-2016209842

PATIENT
  Age: 66 Year
  Sex: Male

DRUGS (13)
  1. INEXIUM /01479302/ [Concomitant]
     Active Substance: ESOMEPRAZOLE MAGNESIUM
  2. APIDRA [Concomitant]
     Active Substance: INSULIN GLULISINE
  3. ALDACTONE [Suspect]
     Active Substance: SPIRONOLACTONE
     Indication: CARDIAC FAILURE
     Dosage: 50 MG, 1X/DAY
     Route: 048
  4. LASILIX SPECIAL /00032601/ [Suspect]
     Active Substance: FUROSEMIDE
     Indication: CARDIAC FAILURE
     Dosage: 375 MG, DAILY
     Route: 048
  5. DIFFU-K [Concomitant]
     Active Substance: POTASSIUM CHLORIDE
  6. TANGANIL /01593101/ [Concomitant]
  7. APROVEL [Concomitant]
     Active Substance: IRBESARTAN
     Indication: CARDIOMYOPATHY
     Dosage: UNK
     Dates: end: 20160122
  8. KARDEGIC [Concomitant]
     Active Substance: ASPIRIN LYSINE
  9. TAHOR [Concomitant]
     Active Substance: ATORVASTATIN CALCIUM
  10. ENTRESTO [Suspect]
     Active Substance: SACUBITRIL\VALSARTAN
     Indication: CARDIAC FAILURE
     Dosage: 1 DF, 2X/DAY
     Route: 048
     Dates: start: 20160122
  11. STILNOX [Concomitant]
     Active Substance: ZOLPIDEM TARTRATE
  12. CARVEDILOL. [Concomitant]
     Active Substance: CARVEDILOL
  13. LANTUS [Concomitant]
     Active Substance: INSULIN GLARGINE

REACTIONS (2)
  - Acute prerenal failure [Recovered/Resolved]
  - Dehydration [Recovered/Resolved]

NARRATIVE: CASE EVENT DATE: 20160129
